FAERS Safety Report 9471733 (Version 2)
Quarter: 2013Q3

REPORT INFORMATION
  Report Type: Spontaneous
  Country: US (occurrence: US)
  Receive Date: 20130822
  Receipt Date: 20130904
  Transmission Date: 20140515
  Serious: Yes (Hospitalization, Other)
  Sender: FDA-Public Use
  Company Number: US-GILEAD-2013-0081659

PATIENT
  Age: 39 Year
  Sex: Female

DRUGS (5)
  1. STRIBILD [Suspect]
     Indication: HIV INFECTION
     Dosage: UNK
     Dates: start: 20130616, end: 20130716
  2. TRUVADA [Suspect]
     Indication: HIV INFECTION
     Dosage: UNK UNKNOWN, UNK
     Dates: start: 20130716
  3. HYDROCHLOROTHIAZIDE W/LISINOPRIL [Concomitant]
     Indication: HYPERTENSION
     Dosage: UNK UNKNOWN, UNK
  4. DARUNAVIR [Concomitant]
     Indication: HIV INFECTION
     Dosage: UNK
     Dates: start: 20130716
  5. RITONAVIR [Concomitant]
     Indication: HIV INFECTION
     Dosage: UNK
     Dates: start: 20130716

REACTIONS (2)
  - Rhabdomyolysis [Not Recovered/Not Resolved]
  - Costochondritis [Not Recovered/Not Resolved]
